FAERS Safety Report 6294509-6 (Version None)
Quarter: 2009Q3

REPORT INFORMATION
  Report Type: 
  Country: None (occurrence: None)
  Receive Date: 20090803
  Receipt Date: 20090723
  Transmission Date: 20100115
  Serious: Yes (Other)
  Sender: FDA-Public Use
  Company Number: CH-ASTRAZENECA-2009SE05988

PATIENT
  Age: 38 Year
  Sex: Female

DRUGS (4)
  1. SEROQUEL [Suspect]
     Indication: PERSONALITY DISORDER
     Route: 048
     Dates: start: 20071101
  2. SERESTA [Suspect]
     Route: 048
     Dates: start: 20070101
  3. REMERON [Suspect]
     Indication: PERSONALITY DISORDER
     Route: 048
     Dates: start: 20080201, end: 20081001
  4. STILNOX [Suspect]
     Indication: INSOMNIA
     Route: 048
     Dates: start: 20070101

REACTIONS (2)
  - ABORTION [None]
  - DRUG EXPOSURE DURING PREGNANCY [None]
